FAERS Safety Report 6522338-4 (Version None)
Quarter: 2009Q4

REPORT INFORMATION
  Report Type: 
  Country: None (occurrence: None)
  Receive Date: 20091230
  Receipt Date: 20091224
  Transmission Date: 20100525
  Serious: Yes (Hospitalization)
  Sender: FDA-Public Use
  Company Number: B0620218A

PATIENT
  Sex: Female

DRUGS (4)
  1. REQUIP [Suspect]
     Dosage: 8MG TWICE PER DAY
     Route: 048
     Dates: end: 20090813
  2. MODOPAR [Suspect]
     Dosage: 25MG SIX TIMES PER DAY
     Route: 048
     Dates: end: 20090819
  3. MIANSERINE [Suspect]
     Indication: DEPRESSION
     Route: 048
     Dates: end: 20090813
  4. RIVOTRIL [Suspect]
     Indication: DRUG USE FOR UNKNOWN INDICATION
     Dosage: 2MG TWICE PER DAY
     Route: 048
     Dates: end: 20090828

REACTIONS (5)
  - ABNORMAL BEHAVIOUR [None]
  - AGITATION [None]
  - CONFUSIONAL STATE [None]
  - DELIRIUM [None]
  - HALLUCINATION [None]
